FAERS Safety Report 5715793-0 (Version None)
Quarter: 2008Q2

REPORT INFORMATION
  Report Type: 
  Country: None (occurrence: None)
  Receive Date: 20080422
  Receipt Date: 20080416
  Transmission Date: 20081010
  Serious: Yes (Other)
  Sender: FDA-Public Use
  Company Number: 2008SP007227

PATIENT

DRUGS (1)
  1. TEMODAL (TEMOZOLOMIDE) (TEMOZOLOMIDE) [Suspect]
     Indication: DRUG USE FOR UNKNOWN INDICATION
     Dosage: PO
     Route: 048
     Dates: start: 20080401

REACTIONS (3)
  - GENERALISED ERYTHEMA [None]
  - PNEUMONIA [None]
  - PNEUMONITIS [None]
